FAERS Safety Report 6244329-3 (Version None)
Quarter: 2009Q2

REPORT INFORMATION
  Report Type: 
  Country: None (occurrence: None)
  Receive Date: 20090625
  Receipt Date: 20090615
  Transmission Date: 20091009
  Serious: Yes (Other)
  Sender: FDA-Public Use
  Company Number: US-ROCHE-639180

PATIENT
  Age: 28 Year
  Sex: Female

DRUGS (9)
  1. MYCOPHENOLATE MOFETIL [Suspect]
     Dosage: MAINTENANCE IMMUNOSUPPRESSION.
     Route: 065
  2. VALGANCICLOVIR HCL [Suspect]
     Indication: DRUG USE FOR UNKNOWN INDICATION
     Route: 065
  3. BORTEZOMIB [Suspect]
     Route: 065
  4. BASILIXIMAB [Suspect]
     Route: 065
  5. MYCOPHENOLIC ACID [Suspect]
     Route: 065
  6. PREDNISONE [Suspect]
     Route: 065
  7. PREDNISONE [Suspect]
     Dosage: TAPER TO 5 MG/DAY BY 3 MONTHS POST-TRANSPLANT.
     Route: 065
  8. TACROLIMUS [Suspect]
     Dosage: MAINTENANCE IMMUNOSUPPRESSION.
     Route: 065
  9. RATG [Suspect]
     Route: 065

REACTIONS (2)
  - FEBRILE NEUTROPENIA [None]
  - TRANSPLANT REJECTION [None]
